FAERS Safety Report 6426036-7 (Version None)
Quarter: 2009Q4

REPORT INFORMATION
  Report Type: 
  Country: None (occurrence: None)
  Receive Date: 20091104
  Receipt Date: 20091027
  Transmission Date: 20100525
  Serious: Yes (Hospitalization)
  Sender: FDA-Public Use
  Company Number: US-BIOGENIDEC-2009BI028808

PATIENT
  Age: 49 Year
  Sex: Male

DRUGS (12)
  1. TYSABRI [Suspect]
     Indication: MULTIPLE SCLEROSIS
     Route: 042
     Dates: start: 20071220, end: 20090801
  2. AVONEX [Concomitant]
     Indication: MULTIPLE SCLEROSIS
  3. PRIMIDONE [Concomitant]
  4. BACLOFEN [Concomitant]
     Indication: MUSCLE SPASMS
  5. BACLOFEN [Concomitant]
  6. FOLATE [Concomitant]
     Indication: ANAEMIA
  7. VITAMIN B-12 [Concomitant]
     Route: 030
  8. MULTIVITAMIN WITH ZINC [Concomitant]
     Indication: ANAEMIA
  9. NYSTATIN [Concomitant]
  10. MIRALAX [Concomitant]
  11. REMERON [Concomitant]
  12. OMEPRAZOLE [Concomitant]

REACTIONS (17)
  - ANAEMIA [None]
  - APHASIA [None]
  - BLADDER CATHETERISATION [None]
  - DEHYDRATION [None]
  - DELIRIUM [None]
  - DYSARTHRIA [None]
  - ENCEPHALOPATHY [None]
  - GASTRITIS [None]
  - HALLUCINATION, VISUAL [None]
  - HYPERGLYCAEMIA [None]
  - IMPAIRED GASTRIC EMPTYING [None]
  - MALNUTRITION [None]
  - MEMORY IMPAIRMENT [None]
  - MUSCULAR WEAKNESS [None]
  - PANCREATIC INSUFFICIENCY [None]
  - PNEUMONIA ASPIRATION [None]
  - URINARY TRACT INFECTION [None]
